FAERS Safety Report 19816492 (Version 1)
Quarter: 2021Q3

REPORT INFORMATION
  Report Type: Spontaneous
  Country: FI (occurrence: FI)
  Receive Date: 20210909
  Receipt Date: 20210909
  Transmission Date: 20211014
  Serious: Yes (Life-Threatening)
  Sender: FDA-Public Use
  Company Number: FI-BEH-2021135610

PATIENT
  Age: 30 Year
  Sex: Female

DRUGS (1)
  1. ALBUREX [Suspect]
     Active Substance: ALBUMIN HUMAN
     Indication: BLOOD VOLUME EXPANSION
     Dosage: 100 MILLILITER, SINGLE
     Route: 042
     Dates: start: 20210726, end: 20210726

REACTIONS (1)
  - Anaphylactic reaction [Recovering/Resolving]

NARRATIVE: CASE EVENT DATE: 20210726
